FAERS Safety Report 5468162-5 (Version None)
Quarter: 2007Q3

REPORT INFORMATION
  Report Type: 
  Country: None (occurrence: None)
  Receive Date: 20070926
  Receipt Date: 20070913
  Transmission Date: 20080115
  Serious: Yes (Hospitalization, Other)
  Sender: FDA-Public Use
  Company Number: US-ELI_LILLY_AND_COMPANY-US200709002860

PATIENT
  Age: 55 Year
  Sex: Female

DRUGS (3)
  1. FORTEO [Suspect]
     Indication: OSTEOPOROSIS
     Dates: start: 20030101, end: 20050101
  2. MORPHINE [Concomitant]
     Dosage: 3000 MG, DAILY (1/D)
  3. DILAUDID [Concomitant]
     Dosage: UNK, DAILY (1/D)

REACTIONS (14)
  - ABSCESS [None]
  - ARTHRALGIA [None]
  - AUTOIMMUNE DISORDER [None]
  - BALANCE DISORDER [None]
  - CONCUSSION [None]
  - FALL [None]
  - HEAD INJURY [None]
  - HIP FRACTURE [None]
  - INFECTION [None]
  - OSTEONECROSIS [None]
  - PAIN [None]
  - PURULENCE [None]
  - PYREXIA [None]
  - RECTAL PROLAPSE [None]
